FAERS Safety Report 11852703 (Version 1)
Quarter: 2015Q4

REPORT INFORMATION
  Report Type: Spontaneous
  Country: FR (occurrence: FR)
  Receive Date: 20151218
  Receipt Date: 20151218
  Transmission Date: 20160305
  Serious: Yes (Hospitalization)
  Sender: FDA-Public Use
  Company Number: FR-PFIZER INC-2015451570

PATIENT
  Age: 42 Year
  Sex: Female

DRUGS (6)
  1. DOSTINEX [Suspect]
     Active Substance: CABERGOLINE
     Indication: PROPHYLAXIS
  2. OVITRELLE [Suspect]
     Active Substance: CHORIOGONADOTROPIN ALFA
     Indication: ASSISTED FERTILISATION
     Dosage: UNK
     Dates: start: 20150713, end: 20150713
  3. DOSTINEX [Suspect]
     Active Substance: CABERGOLINE
     Indication: ASSISTED FERTILISATION
     Dosage: 0.5 MG, UNK
  4. MENOPUR [Suspect]
     Active Substance: FOLLICLE STIMULATING HORMONE BETA POLYPEPTIDE\LUTROPIN ALFA
     Indication: ASSISTED FERTILISATION
     Dosage: UNK
     Dates: start: 20150701, end: 20150712
  5. DECAPEPTYL [Suspect]
     Active Substance: TRIPTORELIN ACETATE
     Indication: ASSISTED FERTILISATION
     Dosage: UNK
     Route: 058
     Dates: start: 20150617, end: 20150712
  6. LOVENOX [Concomitant]
     Active Substance: ENOXAPARIN SODIUM
     Indication: PROPHYLAXIS
     Dosage: UNK

REACTIONS (3)
  - Constipation [Recovered/Resolved]
  - Faecaloma [Recovered/Resolved]
  - Product use issue [Unknown]

NARRATIVE: CASE EVENT DATE: 201507
